FAERS Safety Report 7037070-0 (Version None)
Quarter: 2010Q4

REPORT INFORMATION
  Report Type: 
  Country: None (occurrence: None)
  Receive Date: 20101011
  Receipt Date: 20100927
  Transmission Date: 20110411
  Serious: Yes (Other)
  Sender: FDA-Public Use
  Company Number: PHHY2010BR64163

PATIENT
  Sex: Male
  Weight: 51 kg

DRUGS (3)
  1. FORASEQ [Suspect]
     Indication: BRONCHITIS
     Dosage: 1 DF, BID
  2. DIPIRONA [Concomitant]
  3. DRAMIN [Concomitant]

REACTIONS (5)
  - ABDOMINAL PAIN [None]
  - COUGH [None]
  - OROPHARYNGEAL PAIN [None]
  - VOMITING [None]
  - WEIGHT INCREASED [None]
